FAERS Safety Report 4778050-5 (Version None)
Quarter: 2005Q3

REPORT INFORMATION
  Report Type: 
  Country: None (occurrence: None)
  Receive Date: 20050921
  Receipt Date: 20050907
  Transmission Date: 20060218
  Serious: Yes (Other)
  Sender: FDA-Public Use
  Company Number: 217576

PATIENT
  Age: 63 Year
  Sex: Male

DRUGS (1)
  1. RITUXAN [Suspect]
     Indication: ACUTE LYMPHOCYTIC LEUKAEMIA
     Dates: start: 20050501

REACTIONS (2)
  - HEPATIC ENZYME INCREASED [None]
  - JAUNDICE CHOLESTATIC [None]
